FAERS Safety Report 5623531-5 (Version None)
Quarter: 2008Q1

REPORT INFORMATION
  Report Type: 
  Country: None (occurrence: None)
  Receive Date: 20080212
  Receipt Date: 20080201
  Transmission Date: 20080703
  Serious: Yes (Hospitalization, Other)
  Sender: FDA-Public Use
  Company Number: US-ELI_LILLY_AND_COMPANY-US200802000307

PATIENT
  Sex: Female

DRUGS (2)
  1. HUMULIN R [Suspect]
     Dates: start: 19880101
  2. HUMULIN N [Suspect]
     Dates: start: 19880101

REACTIONS (6)
  - BLINDNESS UNILATERAL [None]
  - CEREBROVASCULAR ACCIDENT [None]
  - CONFUSIONAL STATE [None]
  - MEMORY IMPAIRMENT [None]
  - READING DISORDER [None]
  - VISUAL DISTURBANCE [None]
